FAERS Safety Report 4393966-X (Version None)
Quarter: 2004Q3

REPORT INFORMATION
  Report Type: 
  Country: None (occurrence: None)
  Receive Date: 20040701
  Receipt Date: 20040615
  Transmission Date: 20050211
  Serious: Yes (Hospitalization)
  Sender: FDA-Public Use
  Company Number: 2004AP02774

PATIENT
  Age: 76 Year
  Sex: Female

DRUGS (9)
  1. ACCOLATE [Suspect]
     Indication: ASTHMA
     Dosage: 80 MG DAILY PO
     Route: 048
     Dates: start: 20030912, end: 20040124
  2. ACCOLATE [Suspect]
     Indication: ASTHMA
     Dosage: 40 MG DAILY PO
     Route: 048
     Dates: start: 20040125, end: 20040318
  3. SEREVENT [Suspect]
     Indication: ASTHMA
     Dosage: 100 UG DAILY IH
     Route: 055
     Dates: start: 20031107, end: 20040512
  4. PREDONINE [Concomitant]
  5. DEPAS [Concomitant]
  6. ONON [Concomitant]
  7. THEO-DUR [Concomitant]
  8. PULMICORT [Concomitant]
  9. LENDORM [Concomitant]

REACTIONS (3)
  - CEREBRAL INFARCTION [None]
  - DYSPNOEA EXACERBATED [None]
  - GAMMA-GLUTAMYLTRANSFERASE INCREASED [None]
